FAERS Safety Report 8764575 (Version 1)
Quarter: 2012Q4

REPORT INFORMATION
  Report Type: 
  Country: US (occurrence: US)
  Receive Date: 20120831
  Receipt Date: 20120831
  Transmission Date: 20130627
  Serious: No
  Sender: FDA-Public Use
  Company Number: US-ASTRAZENECA-2011SE67689

PATIENT
  Age: 73 Year
  Sex: Male

DRUGS (6)
  1. SYMBICORT PMDI [Suspect]
     Route: 055
  2. NEXIUM [Suspect]
     Route: 048
  3. NEXIUM [Suspect]
     Dosage: ONE CAPSULE, TWICE DAILY. BEFORE MEALS
     Route: 048
  4. TOPROL XL [Suspect]
     Route: 048
  5. PRILOSEC [Suspect]
     Route: 048
  6. PULMICORT [Concomitant]

REACTIONS (5)
  - Gastrooesophageal reflux disease [Unknown]
  - Chronic obstructive pulmonary disease [Unknown]
  - Muscle spasms [Unknown]
  - Laryngeal disorder [Unknown]
  - Drug dispensing error [Unknown]
